FAERS Safety Report 8560387-5 (Version None)
Quarter: 2012Q3

REPORT INFORMATION
  Report Type: 
  Country: None (occurrence: None)
  Receive Date: 20120802
  Receipt Date: 20120727
  Transmission Date: 20120928
  Serious: Yes (Other)
  Sender: FDA-Public Use
  Company Number: US-ABBOTT-12P-163-0933285-00

PATIENT
  Sex: Female
  Weight: 83.99 kg

DRUGS (8)
  1. HUMIRA [Suspect]
     Dates: start: 20120630
  2. MULTI-VITAMIN [Concomitant]
     Indication: PRODUCT USED FOR UNKNOWN INDICATION
     Dosage: 1 TABLET DAILY
  3. FOLIC ACID [Concomitant]
     Indication: PSORIATIC ARTHROPATHY
  4. HUMIRA [Suspect]
     Dates: start: 20120401, end: 20120630
  5. WELLBUTRIN [Concomitant]
     Indication: DEPRESSION
  6. HUMIRA [Suspect]
     Indication: PSORIATIC ARTHROPATHY
     Route: 058
     Dates: start: 20120412
  7. METHOTREXATE [Concomitant]
     Indication: PSORIATIC ARTHROPATHY
     Dosage: 5 TABLETS WEEKLY
  8. FOLIC ACID [Concomitant]
     Indication: VITAMIN SUPPLEMENTATION
     Dosage: DAILY
     Route: 048

REACTIONS (21)
  - INJECTION SITE HAEMATOMA [None]
  - JOINT SWELLING [None]
  - TREMOR [None]
  - DEPRESSION [None]
  - APATHY [None]
  - WEIGHT BEARING DIFFICULTY [None]
  - JOINT WARMTH [None]
  - MASS [None]
  - EAR PAIN [None]
  - MENISCUS LESION [None]
  - ARTHRALGIA [None]
  - ASTHENIA [None]
  - PAIN IN EXTREMITY [None]
  - PAIN IN JAW [None]
  - PAIN [None]
  - WEIGHT INCREASED [None]
  - POOR QUALITY SLEEP [None]
  - GAIT DISTURBANCE [None]
  - TOOTH INFECTION [None]
  - OEDEMA PERIPHERAL [None]
  - FEELING HOT [None]
